FAERS Safety Report 11665957 (Version 1)
Quarter: 2015Q4

REPORT INFORMATION
  Report Type: Spontaneous
  Country: US (occurrence: US)
  Receive Date: 20151027
  Receipt Date: 20151027
  Transmission Date: 20160304
  Serious: No
  Sender: FDA-Public Use
  Company Number: US-ELI_LILLY_AND_COMPANY-US201001003258

PATIENT
  Age: 68 Year
  Sex: Female

DRUGS (4)
  1. CALCIUM [Concomitant]
     Active Substance: CALCIUM
     Dosage: 1200 D/F, UNK
  2. VITAMIN D [Concomitant]
     Active Substance: CHOLECALCIFEROL
     Dosage: 400 IU, UNK
  3. EFFEXOR [Concomitant]
     Active Substance: VENLAFAXINE HYDROCHLORIDE
  4. FORTEO [Suspect]
     Active Substance: TERIPARATIDE
     Dates: start: 20091111, end: 20091130

REACTIONS (5)
  - Nausea [Unknown]
  - Fatigue [Unknown]
  - Neck pain [Unknown]
  - Pain in jaw [Unknown]
  - Dizziness [Unknown]

NARRATIVE: CASE EVENT DATE: 20091128
